FAERS Safety Report 5194548-2 (Version None)
Quarter: 2006Q4

REPORT INFORMATION
  Report Type: 
  Country: None (occurrence: None)
  Receive Date: 20061221
  Receipt Date: 20061208
  Transmission Date: 20070319
  Serious: Yes (Hospitalization)
  Sender: FDA-Public Use
  Company Number: 15365

PATIENT
  Age: 73 Year
  Sex: Female
  Weight: 55 kg

DRUGS (9)
  1. VINCRISTINE [Suspect]
     Dosage: 1.4 MG/M2 Q3W IV
     Route: 042
     Dates: start: 20060706
  2. CYCLOPHOSPHAMIDE [Suspect]
     Dosage: 750 MG/M2 Q3W IV
     Route: 042
     Dates: start: 20060706
  3. LOPERAMIDE HCL [Concomitant]
  4. CIPROFLOXACIN [Concomitant]
  5. ACETAMINOPHEN [Concomitant]
  6. FOLIC ACID [Concomitant]
  7. CALCIUM CASENAT [Concomitant]
  8. CIANOCOBALAMIN [Concomitant]
  9. FILGRASTIM [Concomitant]

REACTIONS (11)
  - BACTERIA URINE IDENTIFIED [None]
  - BLOOD ALBUMIN DECREASED [None]
  - BLOOD CALCIUM DECREASED [None]
  - BLOOD MAGNESIUM DECREASED [None]
  - BLOOD POTASSIUM DECREASED [None]
  - DEHYDRATION [None]
  - ESCHERICHIA INFECTION [None]
  - GASTROENTERITIS [None]
  - HAEMOGLOBIN DECREASED [None]
  - MALABSORPTION [None]
  - REFLUX GASTRITIS [None]
